FAERS Safety Report 8598163 (Version 2)
Quarter: 2014Q1

REPORT INFORMATION
  Report Type: Spontaneous
  Country: US (occurrence: None)
  Receive Date: 20120323
  Receipt Date: 20140306
  Transmission Date: 20141002
  Serious: Yes (Hospitalization)
  Sender: FDA-Public Use
  Company Number: 163-21880-11071275

PATIENT
  Age: 69 Year
  Sex: Male
  Weight: 68.95 kg

DRUGS (12)
  1. REVLIMID [Suspect]
     Indication: PLASMA CELL MYELOMA
     Dosage: 15 MG, 1 IN 1 D, PO, 25 MG, DAILY X 21 DAYS, PO, 15 MG, 1 IN 1 D, PO
     Route: 048
     Dates: start: 20110208
  2. SERTRALINE HYDROCHLORIDE [Concomitant]
  3. AMLODIPINE [Concomitant]
  4. DEXAMETHASONE (DEXAMETHASONE) [Concomitant]
  5. ASPIRIN (ACETYLSALICYLIC ACID) [Concomitant]
  6. ACYCLOVIR [Concomitant]
  7. CRESTOR [Concomitant]
  8. MIRALAX [Concomitant]
  9. VITAMIN D (ERGOCALCIFEROL) [Concomitant]
  10. ZETIA (EZETIMIBE) [Concomitant]
  11. COUMADIN (WARFARIN SODIUM) [Concomitant]
  12. CALCIFEROL (ERGOCALCIFEROL) [Concomitant]

REACTIONS (4)
  - Thrombosis [None]
  - Dehydration [None]
  - Pain [None]
  - Full blood count decreased [None]
